FAERS Safety Report 5687982-5 (Version None)
Quarter: 2008Q1

REPORT INFORMATION
  Report Type: 
  Country: None (occurrence: None)
  Receive Date: 20080328
  Receipt Date: 20061002
  Transmission Date: 20080703
  Serious: No
  Sender: FDA-Public Use
  Company Number: US-BAYER-US-2006-029578

PATIENT
  Age: 39 Year
  Sex: Female
  Weight: 84 kg

DRUGS (5)
  1. MIRENA [Suspect]
     Indication: CONTRACEPTION
     Route: 015
     Dates: start: 20060824
  2. HYDROCHLOROTHIAZIDE [Concomitant]
     Dosage: UNIT DOSE: 25 MG
  3. WELLBUTRIN [Concomitant]
     Indication: MOOD ALTERED
  4. BENICAR [Concomitant]
     Dosage: UNIT DOSE: 10 MG
  5. TRICOR [Concomitant]
     Indication: BLOOD CHOLESTEROL

REACTIONS (4)
  - ABDOMINAL PAIN [None]
  - LIBIDO DECREASED [None]
  - MOOD ALTERED [None]
  - WEIGHT INCREASED [None]
